FAERS Safety Report 9296090 (Version 1)
Quarter: 2013Q2

REPORT INFORMATION
  Report Type: Report from Study
  Country: US (occurrence: US)
  Receive Date: 20130517
  Receipt Date: 20130517
  Transmission Date: 20140414
  Serious: Yes (Life-Threatening, Hospitalization, Other)
  Sender: FDA-Public Use
  Company Number: US-PFIZER INC-2012134095

PATIENT
  Age: 43 Year
  Sex: Male
  Weight: 87.53 kg

DRUGS (2)
  1. TOFACITINIB CITRATE [Suspect]
     Indication: PSORIASIS
     Dosage: PLACEBO, 0 MG, 2X/DAY
     Route: 048
     Dates: start: 20111031, end: 20120221
  2. TOFACITINIB CITRATE [Suspect]
     Dosage: CP-690,550, 10 MG, 2X/DAY
     Route: 048
     Dates: start: 20120221, end: 20120323

REACTIONS (1)
  - Hepatic failure [Recovering/Resolving]
